FAERS Safety Report 15112804 (Version 3)
Quarter: 2018Q3

REPORT INFORMATION
  Report Type: Report from Study
  Country: IT (occurrence: IT)
  Receive Date: 20180705
  Receipt Date: 20180801
  Transmission Date: 20181010
  Serious: Yes (Other)
  Sender: FDA-Public Use
  Company Number: IT-AMGEN-ITANI2018088833

PATIENT
  Sex: Male

DRUGS (7)
  1. GAVISCON [Concomitant]
     Active Substance: ALUMINUM HYDROXIDE\MAGNESIUM CARBONATE
     Dosage: 1 DF AFTER MEALS AND BEFORE SLEEPING
     Route: 048
     Dates: start: 20131213, end: 20140221
  2. FERRO?GRAD [Concomitant]
     Active Substance: FERROUS SULFATE
     Indication: EXPOSURE DURING PREGNANCY
     Dosage: 1 DF, DAILY
     Route: 048
     Dates: start: 20131018, end: 20140221
  3. ECOVAL [Concomitant]
     Indication: EXPOSURE DURING PREGNANCY
     Dosage: UNK, AS NEEDED
     Route: 064
     Dates: start: 20130809
  4. GAVISCON [Concomitant]
     Active Substance: ALUMINUM HYDROXIDE\MAGNESIUM CARBONATE
     Indication: EXPOSURE DURING PREGNANCY
     Dosage: 1 DF AFTER MEALS AND BEFORE SLEEPING
     Route: 064
     Dates: start: 20131213
  5. FOLINA [Concomitant]
     Active Substance: FOLIC ACID
     Indication: EXPOSURE DURING PREGNANCY
     Dosage: 5 MG, UNK
     Route: 048
     Dates: start: 20111104, end: 20140221
  6. ETANERCEPT [Suspect]
     Active Substance: ETANERCEPT
     Indication: MATERNAL EXPOSURE DURING PREGNANCY
     Dosage: 25 MG, EVERY 4 DAYS
     Route: 062
     Dates: start: 20131206, end: 20140221
  7. TACHIPIRINA [Concomitant]
     Active Substance: ACETAMINOPHEN
     Indication: EXPOSURE DURING PREGNANCY
     Dosage: 1000 MG, AS NEEDED (UP TO TWICE DAILY)
     Route: 048
     Dates: start: 20110930, end: 20140828

REACTIONS (2)
  - Cryptorchism [Recovered/Resolved]
  - Maternal exposure during pregnancy [Recovered/Resolved]

NARRATIVE: CASE EVENT DATE: 20140311
